FAERS Safety Report 9396268 (Version 3)
Quarter: 2013Q4

REPORT INFORMATION
  Report Type: Spontaneous
  Country: FR (occurrence: FR)
  Receive Date: 20130711
  Receipt Date: 20131101
  Transmission Date: 20140711
  Serious: No
  Sender: FDA-Public Use
  Company Number: FR-JNJFOC-20130705904

PATIENT
  Sex: Female
  Weight: 115 kg

DRUGS (4)
  1. DUROGESIC [Suspect]
     Indication: PRODUCT USED FOR UNKNOWN INDICATION
     Route: 062
     Dates: start: 20130101
  2. TRAMADOL [Concomitant]
     Indication: PAIN
     Route: 048
     Dates: start: 20130101
  3. OXYNORM [Concomitant]
     Indication: PAIN
     Route: 048
     Dates: start: 20130101
  4. DOLIPRANE [Concomitant]
     Indication: PAIN
     Route: 048
     Dates: start: 20130101

REACTIONS (2)
  - Product quality issue [Recovered/Resolved]
  - Inappropriate schedule of drug administration [Unknown]
